FAERS Safety Report 24329385 (Version 2)
Quarter: 2024Q3

REPORT INFORMATION
  Report Type: Spontaneous
  Country: JP (occurrence: JP)
  Receive Date: 20240917
  Receipt Date: 20240921
  Transmission Date: 20241017
  Serious: Yes (Life-Threatening, Other)
  Sender: ABBVIE
  Company Number: None

PATIENT
  Sex: Male

DRUGS (5)
  1. BOTOX [Suspect]
     Active Substance: ONABOTULINUMTOXINA
     Indication: Muscle spasms
     Dosage: TIME INTERVAL: AS NECESSARY: 599 IU, LOWER LIMB, 349; UPPER LIMB, 250
     Route: 065
     Dates: start: 20230925, end: 20230925
  2. BOTOX [Suspect]
     Active Substance: ONABOTULINUMTOXINA
     Indication: Muscle spasms
     Dosage: TIME INTERVAL: AS NECESSARY: 600 IU,  LOWER LIMB, 350; UPPER LIMB, 250
     Route: 065
     Dates: start: 20221119, end: 20221119
  3. BOTOX [Suspect]
     Active Substance: ONABOTULINUMTOXINA
     Indication: Muscle spasms
     Dosage: TIME INTERVAL: AS NECESSARY: 600 IU, LOWER LIMB, 350; UPPER LIMB, 250
     Route: 065
     Dates: start: 20230318, end: 20230318
  4. BOTOX [Suspect]
     Active Substance: ONABOTULINUMTOXINA
     Indication: Muscle spasms
     Dosage: TIME INTERVAL: AS NECESSARY: 600 IU, LOWER LIMB, 350; UPPER LIMB, 250
     Route: 065
     Dates: start: 20230617, end: 20230617
  5. XEOMIN [Suspect]
     Active Substance: INCOBOTULINUMTOXINA
     Indication: Muscle spasms
     Dosage: 650 IU
     Route: 065
     Dates: start: 20240127

REACTIONS (5)
  - Cerebral infarction [Recovered/Resolved with Sequelae]
  - Aphasia [Recovered/Resolved with Sequelae]
  - Prescribed overdose [Unknown]
  - Carotid artery occlusion [Recovered/Resolved with Sequelae]
  - Cerebral artery occlusion [Recovered/Resolved with Sequelae]

NARRATIVE: CASE EVENT DATE: 20240222
